FAERS Safety Report 11118681 (Version 2)
Quarter: 2015Q2

REPORT INFORMATION
  Report Type: Spontaneous
  Country: GB (occurrence: GB)
  Receive Date: 20150518
  Receipt Date: 20150605
  Transmission Date: 20150821
  Serious: Yes (Hospitalization, Other)
  Sender: FDA-Public Use
  Company Number: GB-TEVA-561905ACC

PATIENT
  Age: 44 Year

DRUGS (17)
  1. OLANZAPINE. [Suspect]
     Active Substance: OLANZAPINE
     Dosage: 5 MILLIGRAM DAILY;
  2. DOXAZOSIN [Concomitant]
     Active Substance: DOXAZOSIN\DOXAZOSIN MESYLATE
     Dosage: 1 MILLIGRAM DAILY; IN THE MORNING; DAILY DOSE: 1 MILLIGRAM
  3. SYMBICORT [Concomitant]
     Active Substance: BUDESONIDE\FORMOTEROL FUMARATE DIHYDRATE
     Dosage: 1 PUFF TWICE DAILY INCREASING TO 2 PUFFS TWICE DAILY IF REQUIRED; 400/12 TURBOHALER
     Route: 055
  4. LACTULOSE. [Concomitant]
     Active Substance: LACTULOSE
     Dosage: 30 ML DAILY;
  5. CITALOPRAM [Concomitant]
     Active Substance: CITALOPRAM HYDROBROMIDE
     Dosage: 30 MILLIGRAM DAILY;
  6. BRICANYL [Concomitant]
     Active Substance: TERBUTALINE SULFATE
     Dosage: 1 PUFF FOUR TIMES DAILY; 500MCG TURBOHALER
     Route: 055
  7. LANSOPRAZOLE. [Concomitant]
     Active Substance: LANSOPRAZOLE
     Dosage: 30 MILLIGRAM DAILY; IN THE MORNING; GASTRO-RESISTANT CAPSULE; DAILY DOSE: 30MILLIGRAM
  8. METFORMIN [Concomitant]
     Active Substance: METFORMIN HYDROCHLORIDE
     Dosage: ONE IN THE MORNING AND TWO IN THE EVENING; SUSTAIN RELEASE
  9. TIOTROPIUM [Concomitant]
     Active Substance: TIOTROPIUM
     Dosage: 1 DOSAGE FORMS DAILY; IN THE MORNING. 18 MICROGRAM INHALER; DAILY DOSE: 1 DOSAGE FORMS
     Route: 055
  10. PRIADEL [Concomitant]
     Active Substance: LITHIUM CARBONATE
     Dosage: 2 X 400MG AND 1 X 200MG AT NIGHT; MODIFIED RELEASE TABLET
  11. FERROUS SULFATE [Concomitant]
     Active Substance: FERROUS SULFATE\FERROUS SULFATE, DRIED
     Dosage: 600 MILLIGRAM DAILY;
  12. SIMVASTATIN. [Concomitant]
     Active Substance: SIMVASTATIN
     Dosage: 20 MILLIGRAM DAILY; NIGHTLY; DAILY DOSE: 20MILLIGRAM
  13. OLANZAPINE. [Suspect]
     Active Substance: OLANZAPINE
     Dosage: 20 MILLIGRAM DAILY;
  14. PRO D3 [Concomitant]
  15. PROCYCLIDINE [Concomitant]
     Active Substance: PROCYCLIDINE
     Dosage: TWO IN THE MORNING AND 2 NIGHTLY
  16. ANTIPSYCHOTICS [Concomitant]
     Active Substance: UNSPECIFIED INGREDIENT
     Indication: BIPOLAR DISORDER
     Dosage: BIPOLAR MEDICATION
  17. ZUCLOPENTHIXOL DECANOATE [Concomitant]
     Active Substance: ZUCLOPENTHIXOL DECANOATE
     Dosage: DEPO INJECTION

REACTIONS (3)
  - Malaise [Unknown]
  - Candida infection [Unknown]
  - Blood glucose increased [Recovering/Resolving]
